FAERS Safety Report 6315979-0 (Version None)
Quarter: 2009Q3

REPORT INFORMATION
  Report Type: 
  Country: None (occurrence: None)
  Receive Date: 20090819
  Receipt Date: 20090819
  Transmission Date: 20100115
  Serious: Yes (Life-Threatening, Hospitalization)
  Sender: FDA-Public Use
  Company Number: None

PATIENT
  Age: 38 Year
  Sex: Male
  Weight: 113.3993 kg

DRUGS (2)
  1. FENTANYL-100 [Suspect]
     Indication: NERVE INJURY
     Dosage: ONE 7.5MG PATCH 48 HOURS TRANSDERMAL
     Route: 062
     Dates: start: 20090101, end: 20090818
  2. FENTANYL-100 [Suspect]
     Indication: PAIN
     Dosage: ONE 7.5MG PATCH 48 HOURS TRANSDERMAL
     Route: 062
     Dates: start: 20090101, end: 20090818

REACTIONS (7)
  - AMNESIA [None]
  - DEVICE ADHESION ISSUE [None]
  - HYPERHIDROSIS [None]
  - INCORRECT ROUTE OF DRUG ADMINISTRATION [None]
  - PRODUCT SUBSTITUTION ISSUE [None]
  - SLEEP ATTACKS [None]
  - TEMPERATURE REGULATION DISORDER [None]
